FAERS Safety Report 14993285 (Version 1)
Quarter: 2018Q2

REPORT INFORMATION
  Report Type: Spontaneous
  Country: FR (occurrence: FR)
  Receive Date: 20180610
  Receipt Date: 20180610
  Transmission Date: 20180711
  Serious: Yes (Hospitalization)
  Sender: FDA-Public Use
  Company Number: FR-BAXTER-2018BAX016593

PATIENT
  Age: 75 Year
  Sex: Male

DRUGS (6)
  1. UROMITEXAN 5 G/50 ML, SOLUTION INJECTABLE POUR PERFUSION EN FLACON [Suspect]
     Active Substance: MESNA
     Indication: LYMPHOMA
     Dosage: INCOMPLETE
     Route: 042
     Dates: start: 20170719, end: 20170919
  2. IFOSFAMIDE EG [Suspect]
     Active Substance: IFOSFAMIDE
     Indication: LYMPHOMA
     Route: 042
     Dates: start: 20170719, end: 20170919
  3. CARBOPLATIN HOSPIRA [Suspect]
     Active Substance: CARBOPLATIN
     Indication: LYMPHOMA
     Dosage: 365 MG AND 380 MG PER CYCLE
     Route: 042
     Dates: start: 20170718, end: 20170919
  4. TRUXIMA [Suspect]
     Active Substance: RITUXIMAB
     Indication: LYMPHOMA
     Dosage: 690 MG AND 660 MG PER CYCLE
     Route: 042
     Dates: start: 20170717, end: 20170918
  5. ETOPOSIDE MYLAN [Suspect]
     Active Substance: ETOPOSIDE
     Indication: LYMPHOMA
     Route: 042
     Dates: start: 20170717, end: 20170920
  6. ZOPHREN [Suspect]
     Active Substance: ONDANSETRON
     Indication: VOMITING
     Dosage: INCOMPLETE
     Route: 042
     Dates: start: 20170719, end: 20170919

REACTIONS (1)
  - Encephalopathy [Recovered/Resolved]

NARRATIVE: CASE EVENT DATE: 20170719
